FAERS Safety Report 22250890 (Version 2)
Quarter: 2023Q2

REPORT INFORMATION
  Report Type: Report from Study
  Country: US (occurrence: US)
  Receive Date: 20230425
  Receipt Date: 20230427
  Transmission Date: 20230722
  Serious: No
  Sender: FDA-Public Use
  Company Number: US-002147023-NVSC2023US088757

PATIENT
  Sex: Female

DRUGS (15)
  1. CLONAZEPAM [Suspect]
     Active Substance: CLONAZEPAM
     Indication: Psoriasis
     Dosage: 0.5 MG
     Route: 048
  2. HYDROCHLOROTHIAZIDE [Suspect]
     Active Substance: HYDROCHLOROTHIAZIDE
     Indication: Psoriasis
     Dosage: UNK
     Route: 048
  3. COSENTYX [Suspect]
     Active Substance: SECUKINUMAB
     Indication: Psoriasis
     Dosage: 150 MG
     Route: 058
  4. COSENTYX [Suspect]
     Active Substance: SECUKINUMAB
     Indication: Psoriasis
     Dosage: 300 MG, QMO
     Route: 058
  5. METHOTREXATE [Suspect]
     Active Substance: METHOTREXATE
     Indication: Psoriasis
     Route: 065
  6. MEDROXYPROGESTERONE [Suspect]
     Active Substance: MEDROXYPROGESTERONE
     Indication: Psoriasis
     Dosage: 150 MG
     Route: 030
  7. HYDROCHLOROTHIAZIDE\LOSARTAN [Suspect]
     Active Substance: HYDROCHLOROTHIAZIDE\LOSARTAN
     Indication: Product used for unknown indication
     Route: 065
  8. OMEPRAZOLE [Suspect]
     Active Substance: OMEPRAZOLE
     Indication: Psoriasis
     Dosage: 20 MG
     Route: 048
  9. LOSARTAN [Suspect]
     Active Substance: LOSARTAN
     Indication: Psoriasis
     Dosage: 100 MG
     Route: 048
  10. LOSARTAN [Suspect]
     Active Substance: LOSARTAN
     Dosage: UNK (HYDROCHLOROTHIAZIDE 100-12.5 MG)
     Route: 048
  11. BUSPIRONE [Suspect]
     Active Substance: BUSPIRONE HYDROCHLORIDE
     Indication: Psoriasis
     Dosage: 15 MG
     Route: 048
  12. DEPO-PROVERA [Suspect]
     Active Substance: MEDROXYPROGESTERONE ACETATE
     Indication: Product used for unknown indication
     Dosage: UNK
     Route: 065
  13. CITALOPRAM [Suspect]
     Active Substance: CITALOPRAM HYDROBROMIDE
     Indication: Psoriasis
     Dosage: 40 MG
     Route: 048
  14. CYCLOBENZAPRINE [Suspect]
     Active Substance: CYCLOBENZAPRINE
     Indication: Psoriasis
     Dosage: 10 MG
     Route: 048
  15. OTEZLA [Concomitant]
     Active Substance: APREMILAST
     Indication: Product used for unknown indication
     Dosage: UNK
     Route: 065

REACTIONS (14)
  - Psoriasis [Unknown]
  - Skin fissures [Unknown]
  - Arthralgia [Unknown]
  - Skin lesion [Unknown]
  - Pain of skin [Unknown]
  - Dry skin [Unknown]
  - Skin swelling [Unknown]
  - Pruritus [Unknown]
  - Hidradenitis [Unknown]
  - Skin exfoliation [Unknown]
  - Palmoplantar pustulosis [Unknown]
  - Skin plaque [Unknown]
  - Product use in unapproved indication [Unknown]
  - Treatment failure [Unknown]
